FAERS Safety Report 8924894 (Version 2)
Quarter: 2013Q2

REPORT INFORMATION
  Report Type: Spontaneous
  Country: NL (occurrence: NL)
  Receive Date: 20121126
  Receipt Date: 20130516
  Transmission Date: 20140414
  Serious: Yes (Congenital Anomaly, Other)
  Sender: FDA-Public Use
  Company Number: NL-BAXTER-2012BAX024095

PATIENT
  Age: 0 Year
  Sex: Female
  Weight: 2.2 kg

DRUGS (3)
  1. ENDOXAN OMHULDE TABLET, OMHULDE TABLETTEN 50 MG [Suspect]
     Indication: CHEMOTHERAPY
     Route: 064
  2. DOXORUBICINE HCL ACC INFVLST CONC 2MG/ML FL   5ML [Concomitant]
     Indication: BREAST CANCER
     Route: 064
  3. DOCETAXEL ACCORD INFVLST CONC 20MG/ML FL 1ML [Concomitant]
     Indication: BREAST CANCER
     Route: 064

REACTIONS (7)
  - Syndactyly [Not Recovered/Not Resolved]
  - Clinodactyly [Not Recovered/Not Resolved]
  - Foetal exposure during pregnancy [Unknown]
  - Foetal growth restriction [Unknown]
  - Premature rupture of membranes [None]
  - Caesarean section [None]
  - Foetal distress syndrome [None]
